FAERS Safety Report 8613243-8 (Version None)
Quarter: 2012Q3

REPORT INFORMATION
  Report Type: 
  Country: None (occurrence: None)
  Receive Date: 20120822
  Receipt Date: 20120718
  Transmission Date: 20120928
  Serious: No
  Sender: FDA-Public Use
  Company Number: US-009507513-1207USA007250

PATIENT

DRUGS (1)
  1. EMEND [Suspect]
     Indication: PROPHYLAXIS OF NAUSEA AND VOMITING
     Dosage: 150 MG ON DAY 1, 30 MINUTES PRIOR TO CHEMOTHERAPY
     Route: 042

REACTIONS (1)
  - INFUSION SITE PAIN [None]
